FAERS Safety Report 24728335 (Version 1)
Quarter: 2024Q4

REPORT INFORMATION
  Report Type: Spontaneous
  Country: DE (occurrence: DE)
  Receive Date: 20241212
  Receipt Date: 20241212
  Transmission Date: 20250115
  Serious: Yes (Other)
  Sender: JOHNSON AND JOHNSON
  Company Number: DE-JNJFOC-20241203505

PATIENT
  Age: 33 Year
  Sex: Female

DRUGS (6)
  1. REMICADE [Suspect]
     Active Substance: INFLIXIMAB
     Indication: Colitis ulcerative
     Route: 041
  2. ADALIMUMAB [Suspect]
     Active Substance: ADALIMUMAB
     Indication: Colitis ulcerative
     Dates: start: 2015, end: 2015
  3. UPADACITINIB [Suspect]
     Active Substance: UPADACITINIB
     Indication: Colitis ulcerative
     Dates: start: 202208, end: 202210
  4. UPADACITINIB [Suspect]
     Active Substance: UPADACITINIB
     Dates: start: 202210
  5. PREDNISOLONE [Concomitant]
     Active Substance: PREDNISOLONE
  6. VEDOLIZUMAB [Concomitant]
     Active Substance: VEDOLIZUMAB

REACTIONS (4)
  - Anaphylactic shock [Unknown]
  - Clostridium difficile infection [Unknown]
  - Infection susceptibility increased [Unknown]
  - Drug specific antibody present [Unknown]

NARRATIVE: CASE EVENT DATE: 20150101
